FAERS Safety Report 25855247 (Version 1)
Quarter: 2025Q3

REPORT INFORMATION
  Report Type: Spontaneous
  Country: EU (occurrence: EU)
  Receive Date: 20250927
  Receipt Date: 20250927
  Transmission Date: 20251020
  Serious: Yes (Hospitalization, Other)
  Sender: CELLTRION
  Company Number: EU-SANDOZ-SDZ2025SK065072

PATIENT

DRUGS (9)
  1. USTEKINUMAB [Suspect]
     Active Substance: USTEKINUMAB
     Indication: Product used for unknown indication
     Route: 065
  2. USTEKINUMAB [Suspect]
     Active Substance: USTEKINUMAB
     Route: 058
  3. METHOTREXATE SODIUM [Suspect]
     Active Substance: METHOTREXATE SODIUM
     Indication: Crohn^s disease
     Route: 065
  4. IMURAN [Suspect]
     Active Substance: AZATHIOPRINE
     Indication: Crohn^s disease
     Route: 065
  5. REMICADE [Suspect]
     Active Substance: INFLIXIMAB
     Indication: Product used for unknown indication
     Route: 065
     Dates: start: 201808, end: 202212
  6. PREDNISONE ACETATE [Suspect]
     Active Substance: PREDNISONE ACETATE
     Indication: Crohn^s disease
     Route: 065
  7. CONCOR COMBI [Concomitant]
     Indication: Product used for unknown indication
     Route: 065
  8. AMINOSALICYLIC ACID [Concomitant]
     Active Substance: AMINOSALICYLIC ACID
     Indication: Product used for unknown indication
     Route: 065
  9. OMEPRAZOLE SODIUM [Concomitant]
     Active Substance: OMEPRAZOLE SODIUM
     Indication: Product used for unknown indication
     Route: 065

REACTIONS (12)
  - Crohn^s disease [Unknown]
  - Leukopenia [Unknown]
  - Pneumonia streptococcal [Unknown]
  - Lupus-like syndrome [Unknown]
  - Supraventricular tachycardia [Unknown]
  - Dyspepsia [Unknown]
  - Hypertension [Unknown]
  - Cough [Unknown]
  - Arthralgia [Unknown]
  - Myalgia [Unknown]
  - Drug ineffective [Unknown]
  - Product use in unapproved indication [Unknown]

NARRATIVE: CASE EVENT DATE: 20210201
